FAERS Safety Report 7763726-8 (Version None)
Quarter: 2011Q3

REPORT INFORMATION
  Report Type: 
  Country: None (occurrence: None)
  Receive Date: 20110921
  Receipt Date: 20110913
  Transmission Date: 20111222
  Serious: Yes (Other)
  Sender: FDA-Public Use
  Company Number: AR-AMGEN-ARGSP2011044203

PATIENT
  Age: 42 Year
  Sex: Female
  Weight: 60 kg

DRUGS (2)
  1. ENBREL [Suspect]
     Indication: PSORIATIC ARTHROPATHY
     Dosage: 25 MG, 2X/WEEK
     Route: 058
     Dates: start: 20060222, end: 20110401
  2. ENBREL [Suspect]
     Dosage: UNK
     Dates: start: 20110701

REACTIONS (1)
  - CARPAL TUNNEL SYNDROME [None]
